FAERS Safety Report 5835540-1 (Version None)
Quarter: 2008Q3

REPORT INFORMATION
  Report Type: 
  Country: None (occurrence: None)
  Receive Date: 20080806
  Receipt Date: 20080731
  Transmission Date: 20090109
  Serious: Yes (Hospitalization)
  Sender: FDA-Public Use
  Company Number: B0511588A

PATIENT
  Age: 61 Year
  Sex: Female
  Weight: 45 kg

DRUGS (2)
  1. GW572016 [Suspect]
     Indication: GASTRIC CANCER
     Dosage: 1500MG PER DAY
     Route: 048
     Dates: start: 20080118, end: 20080528
  2. PACLITAXEL [Suspect]
     Indication: GASTRIC CANCER
     Route: 042
     Dates: start: 20080117, end: 20080528

REACTIONS (8)
  - ANOREXIA [None]
  - ASCITES [None]
  - DECREASED APPETITE [None]
  - DIARRHOEA [None]
  - DISEASE PROGRESSION [None]
  - ILEUS [None]
  - NEUTROPENIA [None]
  - WEIGHT DECREASED [None]
